FAERS Safety Report 19969246 (Version 1)
Quarter: 2021Q4

REPORT INFORMATION
  Report Type: Spontaneous
  Country: BE (occurrence: BE)
  Receive Date: 20211019
  Receipt Date: 20211019
  Transmission Date: 20220303
  Serious: Yes (Hospitalization, Other)
  Sender: FDA-Public Use
  Company Number: BE-MLMSERVICE-20211005-1076601-1

PATIENT
  Age: 62 Year
  Sex: Female

DRUGS (5)
  1. ACETAMINOPHEN [Suspect]
     Active Substance: ACETAMINOPHEN
     Indication: Procedural pain
     Dosage: SELF-MEDICATING WITH REPEATED DOSES OF PARACETAMOL FOR NECK PAIN
     Route: 048
  2. ACETAMINOPHEN [Suspect]
     Active Substance: ACETAMINOPHEN
     Indication: Neck pain
     Dosage: 1.5 G, QD
     Route: 048
  3. ACETAMINOPHEN [Suspect]
     Active Substance: ACETAMINOPHEN
     Indication: Abdominal pain
     Dosage: 1 TABLET
     Route: 048
  4. PROTHIPENDYL [Concomitant]
     Active Substance: PROTHIPENDYL
     Dosage: 2 UNK
  5. BROMAZEPAM [Concomitant]
     Active Substance: BROMAZEPAM
     Dosage: UNK

REACTIONS (6)
  - Self-medication [Recovered/Resolved]
  - Metabolic acidosis [Recovered/Resolved]
  - Hepatic cytolysis [Recovered/Resolved]
  - Incorrect product administration duration [Recovered/Resolved]
  - Renal failure [Unknown]
  - Pyroglutamic acidosis [Recovered/Resolved]
